FAERS Safety Report 6419488-X (Version None)
Quarter: 2009Q4

REPORT INFORMATION
  Report Type: 
  Country: None (occurrence: None)
  Receive Date: 20091029
  Receipt Date: 20091021
  Transmission Date: 20100525
  Serious: Yes (Hospitalization, Other)
  Sender: FDA-Public Use
  Company Number: BR-ABBOTT-09P-020-0604171-00

PATIENT
  Sex: Female
  Weight: 92 kg

DRUGS (6)
  1. HUMIRA [Suspect]
     Indication: RHEUMATOID ARTHRITIS
     Route: 058
  2. HUMIRA [Suspect]
     Route: 058
  3. ANTIBIOTIC [Suspect]
     Indication: DRUG USE FOR UNKNOWN INDICATION
  4. PREDNISONE TAB [Concomitant]
     Indication: RHEUMATOID ARTHRITIS
     Dosage: 2 TABLETS A DAY
     Route: 048
     Dates: start: 19990101
  5. METHOTREXATE [Concomitant]
     Indication: RHEUMATOID ARTHRITIS
     Dosage: FORM STRENGTH: 7.5 MILLIGRAMS 2 CAPSULES
     Route: 048
     Dates: start: 20060101
  6. FOLIC ACID [Concomitant]
     Indication: VITAMIN SUPPLEMENTATION
     Dosage: FORM STRENGTH 5 MILLIGRAMS/2 TABLETS
     Route: 048
     Dates: start: 20070101

REACTIONS (8)
  - ABDOMINAL PAIN [None]
  - ARTHRALGIA [None]
  - HYPERSENSITIVITY [None]
  - INFECTION [None]
  - INJECTION SITE PAIN [None]
  - OVARIAN CYST [None]
  - THELITIS [None]
  - UTERINE MASS [None]
